FAERS Safety Report 5168462-2 (Version None)
Quarter: 2006Q4

REPORT INFORMATION
  Report Type: 
  Country: None (occurrence: None)
  Receive Date: 20061208
  Receipt Date: 20061130
  Transmission Date: 20070319
  Serious: Yes (Other)
  Sender: FDA-Public Use
  Company Number: SE-ROCHE-473113

PATIENT
  Age: 18 Year
  Sex: Male
  Weight: 70 kg

DRUGS (3)
  1. ROACCUTAN [Suspect]
     Indication: ACNE
     Route: 065
     Dates: start: 20061006, end: 20061102
  2. ROACCUTAN [Suspect]
     Route: 065
     Dates: start: 20061103, end: 20061116
  3. ROACCUTAN [Suspect]
     Route: 065
     Dates: start: 20061117, end: 20061125

REACTIONS (1)
  - LUPUS MILIARIS DISSEMINATUS FACIEI [None]
